FAERS Safety Report 8121022-3 (Version None)
Quarter: 2012Q1

REPORT INFORMATION
  Report Type: 
  Country: None (occurrence: None)
  Receive Date: 20120203
  Receipt Date: 20120118
  Transmission Date: 20120608
  Serious: Yes (Death)
  Sender: FDA-Public Use
  Company Number: 2012BN000047

PATIENT
  Age: 63 Year
  Sex: Male

DRUGS (2)
  1. DACTINOMYCIN [Suspect]
     Indication: MALIGNANT MELANOMA
     Dosage: 0.1 MG/L;IART
     Route: 013
  2. MELPHALAN HYDROCHLORIDE [Suspect]
     Indication: MALIGNANT MELANOMA
     Dosage: 10 MG;IART 5 MG;IART
     Route: 014

REACTIONS (3)
  - SEPTIC SHOCK [None]
  - UNEVALUABLE EVENT [None]
  - MULTI-ORGAN FAILURE [None]
